FAERS Safety Report 7294746-8 (Version None)
Quarter: 2011Q1

REPORT INFORMATION
  Report Type: 
  Country: None (occurrence: None)
  Receive Date: 20110207
  Receipt Date: 20110121
  Transmission Date: 20110831
  Serious: Yes (Other)
  Sender: FDA-Public Use
  Company Number: 026410

PATIENT
  Sex: Female

DRUGS (2)
  1. LEVOCETIRIZINE (LEVOCETIRIZINE) [Suspect]
     Dosage: ( 5 MG)
  2. CETIRIZINE (CETIRIZINE) [Suspect]
     Dosage: 5-20 MG/DAY;

REACTIONS (8)
  - CONGENITAL ANOMALY [None]
  - INGUINAL HERNIA [None]
  - ACROCHORDON [None]
  - MATERNAL DRUGS AFFECTING FOETUS [None]
  - AORTIC VALVE STENOSIS [None]
  - VENTRICULAR SEPTAL DEFECT [None]
  - ABORTION SPONTANEOUS [None]
  - TRISOMY 18 [None]
